FAERS Safety Report 5003983-4 (Version None)
Quarter: 2006Q2

REPORT INFORMATION
  Report Type: 
  Country: None (occurrence: None)
  Receive Date: 20060515
  Receipt Date: 20060515
  Transmission Date: 20061013
  Serious: Yes (Life-Threatening, Other)
  Sender: FDA-Public Use
  Company Number: None

PATIENT
  Age: 41 Year
  Sex: Female
  Weight: 70.7611 kg

DRUGS (2)
  1. RADIOACTIVE IODINE 131   15.1 MCI [Suspect]
     Indication: HYPERTHYROIDISM
     Dosage: 15.1 MCI   1 ON 2-5 -2001
     Dates: start: 20010205, end: 20010205
  2. RADIOACTIVE IODINE 131    10MCI [Suspect]
     Dosage: 10 MCI   1 ON 5-08-2001
     Dates: start: 20010508, end: 20010508

REACTIONS (24)
  - ADHESION [None]
  - AREFLEXIA [None]
  - ARTHROPATHY [None]
  - BREAST MASS [None]
  - CARDIAC DISORDER [None]
  - CARTILAGE INJURY [None]
  - CEREBRAL DISORDER [None]
  - CEREBROVASCULAR ACCIDENT [None]
  - COLONIC POLYP [None]
  - CONVULSION [None]
  - COUGH [None]
  - EXOSTOSIS [None]
  - EYE DISORDER [None]
  - GASTRIC DISORDER [None]
  - HAEMOPTYSIS [None]
  - LOCAL SWELLING [None]
  - LYMPHADENOPATHY [None]
  - MALAISE [None]
  - MUSCULOSKELETAL DISORDER [None]
  - PHLEBITIS [None]
  - RESPIRATORY DISORDER [None]
  - ROTATOR CUFF SYNDROME [None]
  - TIBIA FRACTURE [None]
  - VOCAL CORD DISORDER [None]
